FAERS Safety Report 8616351 (Version 3)
Quarter: 2013Q4

REPORT INFORMATION
  Report Type: Report from Study
  Country: US (occurrence: US)
  Receive Date: 20120614
  Receipt Date: 20131105
  Transmission Date: 20140711
  Serious: Yes (Hospitalization, Other)
  Sender: FDA-Public Use
  Company Number: US-ELI_LILLY_AND_COMPANY-US201010002647

PATIENT
  Age: 83 Year
  Sex: Female

DRUGS (22)
  1. TERIPARATIDE [Suspect]
     Indication: OSTEOPOROSIS
     Dosage: 20 UG, QD
     Route: 065
     Dates: start: 20100921, end: 20101006
  2. TERIPARATIDE [Suspect]
     Dosage: 20 UG, QD
     Route: 065
     Dates: end: 20120508
  3. TERIPARATIDE [Suspect]
     Dosage: 20 UG, QD
     Route: 065
     Dates: end: 20120508
  4. TERIPARATIDE [Suspect]
     Dosage: 20 UG, QD
     Route: 065
     Dates: end: 20120509
  5. PROZAC [Concomitant]
     Indication: DEPRESSION
  6. TRAZODONE [Concomitant]
     Dosage: 300 MG, UNK
  7. TRAZODONE [Concomitant]
     Dosage: 100 MG, UNK
  8. VITAMIN B NOS [Concomitant]
     Indication: INNER EAR DISORDER
  9. LEVOCETIRIZINE [Concomitant]
     Dosage: 50 MG, QD
  10. NORTRIPTYLINE [Concomitant]
  11. OMEPRAZOLE [Concomitant]
     Dosage: 20 MG, BID
  12. METOPROLOL TARTRATE [Concomitant]
     Dosage: 50 MG, UNK
  13. METOPROLOL TARTRATE [Concomitant]
     Dosage: 12.5 MG, UNK
  14. METOPROLOL TARTRATE [Concomitant]
     Dosage: 25 MG, UNK
  15. METOPROLOL TARTRATE [Concomitant]
     Dosage: 37.5 MG, QD
  16. METAMUCIL [Concomitant]
  17. PERI-COLACE [Concomitant]
  18. CALCIUM [Concomitant]
  19. VITAMIN D [Concomitant]
  20. EXCEDRIN [Concomitant]
     Indication: HEADACHE
     Dosage: UNK, PRN
  21. FIORICET [Concomitant]
     Indication: HEADACHE
     Dosage: UNK, PRN
  22. LEVOTHYROXINE [Concomitant]
     Dosage: 50 UG, QD

REACTIONS (19)
  - Cardiac disorder [Unknown]
  - Chest pain [Recovering/Resolving]
  - Heart rate decreased [Unknown]
  - Dyspepsia [Recovered/Resolved]
  - Herpes zoster [Unknown]
  - Ear infection [Unknown]
  - Vitamin D decreased [Unknown]
  - Pruritus [Unknown]
  - Erythema [Not Recovered/Not Resolved]
  - Arthropod bite [Unknown]
  - Injection site erythema [Recovered/Resolved]
  - Hunger [Recovering/Resolving]
  - Dyspepsia [Unknown]
  - Vomiting [Recovering/Resolving]
  - Injection site pain [Unknown]
  - Constipation [Recovered/Resolved]
  - Dyspepsia [Unknown]
  - Blood calcium increased [Unknown]
  - Nausea [Recovering/Resolving]
